FAERS Safety Report 6691014-X (Version None)
Quarter: 2010Q2

REPORT INFORMATION
  Report Type: 
  Country: None (occurrence: None)
  Receive Date: 20100421
  Receipt Date: 20100414
  Transmission Date: 20101027
  Serious: Yes (Other)
  Sender: FDA-Public Use
  Company Number: GB-MERCK-1004GBR00043

PATIENT
  Age: 41 Year
  Sex: Male
  Weight: 96 kg

DRUGS (5)
  1. JANUVIA [Suspect]
     Route: 048
     Dates: start: 20100101, end: 20100315
  2. ASPIRIN [Concomitant]
     Route: 065
  3. METFORMIN [Concomitant]
     Route: 065
  4. RAMIPRIL [Concomitant]
     Route: 065
  5. ZOCOR [Concomitant]
     Route: 065

REACTIONS (5)
  - ARTHRITIS BACTERIAL [None]
  - BACK PAIN [None]
  - JOINT SWELLING [None]
  - OROPHARYNGEAL PAIN [None]
  - WHITE BLOOD CELL COUNT INCREASED [None]
